FAERS Safety Report 4998362-X (Version None)
Quarter: 2006Q2

REPORT INFORMATION
  Report Type: 
  Country: None (occurrence: None)
  Receive Date: 20060508
  Receipt Date: 20060428
  Transmission Date: 20061013
  Serious: Yes (Other)
  Sender: FDA-Public Use
  Company Number: 2006045724

PATIENT
  Sex: Male

DRUGS (2)
  1. ZOLOFT [Suspect]
     Indication: ANXIETY
     Dosage: 100 MG (DAILY)
  2. ZOLOFT [Suspect]
     Indication: DEPRESSION
     Dosage: 100 MG (DAILY)

REACTIONS (1)
  - DEAFNESS [None]
